FAERS Safety Report 25159659 (Version 1)
Quarter: 2025Q2

REPORT INFORMATION
  Report Type: Spontaneous
  Country: ES (occurrence: ES)
  Receive Date: 20250404
  Receipt Date: 20250404
  Transmission Date: 20250717
  Serious: Yes (Other)
  Sender: RANBAXY
  Company Number: ES-SUN PHARMACEUTICAL INDUSTRIES LTD-2025RR-501213

PATIENT
  Age: 62 Year
  Sex: Male

DRUGS (5)
  1. SUNITINIB [Suspect]
     Active Substance: SUNITINIB
     Indication: Renal cell carcinoma
     Dosage: 50 MILLIGRAM, DAILY
     Route: 065
     Dates: start: 202107, end: 202111
  2. MORPHINE [Suspect]
     Active Substance: MORPHINE
     Indication: Palliative care
     Dosage: 432 MILLIGRAM, DAILY
     Route: 058
  3. MORPHINE [Suspect]
     Active Substance: MORPHINE
     Dosage: 50 MILLIGRAM, QID
     Route: 058
  4. METHADONE [Suspect]
     Active Substance: METHADONE HYDROCHLORIDE
     Indication: Palliative care
     Dosage: 5 MILLIGRAM, DAILY
     Route: 048
  5. FENTANYL [Suspect]
     Active Substance: FENTANYL
     Indication: Cancer pain
     Route: 045

REACTIONS (2)
  - Disease progression [Unknown]
  - Confusional state [Unknown]
